FAERS Safety Report 18914892 (Version 2)
Quarter: 2021Q2

REPORT INFORMATION
  Report Type: Spontaneous
  Country: US (occurrence: US)
  Receive Date: 20210218
  Receipt Date: 20210411
  Transmission Date: 20210717
  Serious: No
  Sender: FDA-Public Use
  Company Number: US-ELI_LILLY_AND_COMPANY-US202102005347

PATIENT
  Age: 68 Year
  Sex: Female

DRUGS (3)
  1. DULOXETINE HYDROCHLORIDE. [Suspect]
     Active Substance: DULOXETINE HYDROCHLORIDE
     Indication: PRODUCT USED FOR UNKNOWN INDICATION
     Dosage: UNK, UNKNOWN
     Route: 065
  2. CYMBALTA [Suspect]
     Active Substance: DULOXETINE HYDROCHLORIDE
     Indication: ARTHRALGIA
     Dosage: 60 MG, UNKNOWN
     Route: 048
  3. CYMBALTA [Suspect]
     Active Substance: DULOXETINE HYDROCHLORIDE
     Indication: DEPRESSED MOOD
     Dosage: ALTERNATING 2 CAPSULES ONE DAY AND THEN 1 CAPSULE THE NEXT DAY, DAILY
     Route: 048

REACTIONS (7)
  - Arthralgia [Unknown]
  - Poor quality product administered [Unknown]
  - Poor quality product administered [Unknown]
  - Depressed mood [Unknown]
  - Drug ineffective [Not Recovered/Not Resolved]
  - Depressed mood [Unknown]
  - Myalgia [Unknown]

NARRATIVE: CASE EVENT DATE: 20191108
